FAERS Safety Report 10021238 (Version 3)
Quarter: 2014Q4

REPORT INFORMATION
  Report Type: Report from Study
  Country: IT (occurrence: IT)
  Receive Date: 20140319
  Receipt Date: 20141209
  Transmission Date: 20150528
  Serious: Yes (Hospitalization)
  Sender: FDA-Public Use
  Company Number: IT-ROCHE-1282275

PATIENT
  Age: 69 Year
  Sex: Female
  Weight: 57.4 kg

DRUGS (2)
  1. TRASTUZUMAB EMTANSINE [Suspect]
     Active Substance: ADO-TRASTUZUMAB EMTANSINE
     Route: 042
     Dates: start: 20130722
  2. TRASTUZUMAB EMTANSINE [Suspect]
     Active Substance: ADO-TRASTUZUMAB EMTANSINE
     Indication: HER-2 POSITIVE BREAST CANCER
     Dosage: LAST DOSE PRIOR TO SAE WAS TAKEN ON 10/JUN/2013
     Route: 042
     Dates: start: 20130318, end: 20130701

REACTIONS (1)
  - ECG signs of myocardial ischaemia [Recovered/Resolved]

NARRATIVE: CASE EVENT DATE: 20130701
